FAERS Safety Report 20801093 (Version 1)
Quarter: 2022Q2

REPORT INFORMATION
  Report Type: Report from Study
  Country: MX (occurrence: MX)
  Receive Date: 20220509
  Receipt Date: 20220509
  Transmission Date: 20220720
  Serious: Yes (Other)
  Sender: FDA-Public Use
  Company Number: MX-NOVARTISPH-NVSC2022MX085928

PATIENT
  Age: 43 Year
  Sex: Male
  Weight: 78 kg

DRUGS (3)
  1. METFORMIN HYDROCHLORIDE\VILDAGLIPTIN [Suspect]
     Active Substance: METFORMIN HYDROCHLORIDE\VILDAGLIPTIN
     Indication: Diabetes mellitus
     Dosage: 1 DOSAGE FORM, QD (50/850MG)
     Route: 048
     Dates: start: 2020, end: 202111
  2. METFORMIN HYDROCHLORIDE\VILDAGLIPTIN [Suspect]
     Active Substance: METFORMIN HYDROCHLORIDE\VILDAGLIPTIN
     Dosage: UNK (1 AND 1/2 DF)
     Route: 048
     Dates: start: 202111
  3. CAPTOPRIL [Concomitant]
     Active Substance: CAPTOPRIL
     Indication: Hypertension
     Dosage: 1 DOSAGE FORM, QD (STARTED 7 YEARS AGO)
     Route: 048

REACTIONS (5)
  - Infection [Recovered/Resolved]
  - Ligament sprain [Recovered/Resolved]
  - Skin ulcer [Recovered/Resolved]
  - Blood glucose increased [Recovered/Resolved]
  - Off label use [Not Recovered/Not Resolved]

NARRATIVE: CASE EVENT DATE: 20211001
